FAERS Safety Report 14069126 (Version 1)
Quarter: 2017Q4

REPORT INFORMATION
  Report Type: Spontaneous
  Country: JP (occurrence: JP)
  Receive Date: 20171010
  Receipt Date: 20171010
  Transmission Date: 20180321
  Serious: Yes (Other)
  Sender: FDA-Public Use
  Company Number: JP-TEVA-2017-JP-003326J

PATIENT
  Age: 79 Year
  Sex: Male

DRUGS (2)
  1. CEFAZOLIN SODIUM FOR INJECTION 2G ^TAIYO^ [Suspect]
     Active Substance: CEFAZOLIN SODIUM
     Indication: ENDOCARDITIS
     Route: 042
  2. GENTAMICIN SULFATE. [Concomitant]
     Active Substance: GENTAMICIN SULFATE
     Indication: ENDOCARDITIS
     Route: 042

REACTIONS (3)
  - Cerebral infarction [Recovered/Resolved]
  - Cerebral artery embolism [Recovered/Resolved]
  - Cardiac valve vegetation [Recovered/Resolved]
